FAERS Safety Report 4718899-8 (Version None)
Quarter: 2005Q3

REPORT INFORMATION
  Report Type: 
  Country: None (occurrence: None)
  Receive Date: 20050719
  Receipt Date: 20050705
  Transmission Date: 20060218
  Serious: Yes (Hospitalization)
  Sender: FDA-Public Use
  Company Number: 172446

PATIENT
  Age: 52 Year
  Sex: Male
  Weight: 111.1313 kg

DRUGS (6)
  1. AVONEX [Suspect]
     Indication: MULTIPLE SCLEROSIS
     Dosage: 30 UG; QW; IM
     Route: 030
     Dates: start: 19980101
  2. VITAMINS [Concomitant]
  3. AMANTADINE [Concomitant]
  4. PROTONIX [Concomitant]
  5. STOOL SOFTENER (NOS) [Concomitant]
  6. IBUPROFEN [Concomitant]

REACTIONS (11)
  - BRAIN CONTUSION [None]
  - CLAVICLE FRACTURE [None]
  - CONTUSION [None]
  - EXTRADURAL HAEMATOMA [None]
  - GRAND MAL CONVULSION [None]
  - IMPAIRED HEALING [None]
  - MICTURITION URGENCY [None]
  - NERVOUS SYSTEM DISORDER [None]
  - RIB FRACTURE [None]
  - SUBDURAL HAEMATOMA [None]
  - URINARY TRACT INFECTION [None]
